FAERS Safety Report 10686950 (Version 1)
Quarter: 2015Q1

REPORT INFORMATION
  Report Type: Not Available
  Country: FR (occurrence: FR)
  Receive Date: 20150102
  Receipt Date: 20150102
  Transmission Date: 20150720
  Serious: Yes (Hospitalization)
  Sender: FDA-Public Use
  Company Number: FR-BEH-2014047545

PATIENT
  Age: 68 Year
  Sex: Male

DRUGS (11)
  1. FLUDARABINE ACTAVIS [Suspect]
     Active Substance: FLUDARABINE PHOSPHATE
  2. RAMIPRIL. [Concomitant]
     Active Substance: RAMIPRIL
  3. KARDEGIC [Concomitant]
     Active Substance: ASPIRIN LYSINE
  4. ENDOXAN [Concomitant]
     Active Substance: CYCLOPHOSPHAMIDE
  5. HIZENTRA [Suspect]
     Active Substance: HUMAN IMMUNOGLOBULIN G
     Indication: INFECTION
     Dosage: COURSE
     Route: 058
     Dates: start: 20140415, end: 20140513
  6. BACTRIM [Suspect]
     Active Substance: SULFAMETHOXAZOLE\TRIMETHOPRIM
     Indication: LYMPHOMA
     Dosage: START DATE: ??-SEP-2013
     Route: 048
     Dates: end: 20140903
  7. MECIR [Concomitant]
     Active Substance: TAMSULOSIN HYDROCHLORIDE
  8. CRESTOR [Concomitant]
     Active Substance: ROSUVASTATIN CALCIUM
  9. CLAIRYG [Suspect]
     Active Substance: HUMAN IMMUNOGLOBULIN G
     Indication: INFECTION
     Dosage: START DATE: ??-FEB-2014; STOP DATE: ??-MAR-2014
     Route: 042
  10. MABTHERA [Suspect]
     Active Substance: RITUXIMAB
     Indication: LYMPHOMA
     Dosage: START DATE: ??-SEP-2013
     Route: 042
     Dates: end: 20140120
  11. ATENONOL [Concomitant]

REACTIONS (4)
  - Optic neuropathy [Not Recovered/Not Resolved]
  - Feeling cold [Unknown]
  - Visual acuity reduced [Not Recovered/Not Resolved]
  - Optic neuritis [Not Recovered/Not Resolved]

NARRATIVE: CASE EVENT DATE: 20140523
